FAERS Safety Report 7913081-5 (Version None)
Quarter: 2011Q4

REPORT INFORMATION
  Report Type: 
  Country: None (occurrence: None)
  Receive Date: 20111114
  Receipt Date: 20111031
  Transmission Date: 20120403
  Serious: Yes (Hospitalization)
  Sender: FDA-Public Use
  Company Number: NL-MEDIMMUNE-MEDI-0013812

PATIENT
  Sex: Male
  Weight: 5.4 kg

DRUGS (6)
  1. SYNAGIS [Suspect]
     Indication: BRONCHOPULMONARY DYSPLASIA
     Route: 030
     Dates: start: 20110905, end: 20110905
  2. MEDICATIONS NOS [Concomitant]
     Dates: start: 20110101
  3. LACTULOSE [Concomitant]
  4. SYNAGIS [Suspect]
     Route: 030
     Dates: start: 20111003, end: 20111003
  5. SYNAGIS [Suspect]
     Route: 030
     Dates: start: 20111030, end: 20111030
  6. FERRO DRINK [Concomitant]

REACTIONS (3)
  - COUGH [None]
  - OXYGEN SATURATION DECREASED [None]
  - ASTHMA [None]
